FAERS Safety Report 7265772-X (Version None)
Quarter: 2011Q1

REPORT INFORMATION
  Report Type: 
  Country: None (occurrence: None)
  Receive Date: 20110131
  Receipt Date: 20110124
  Transmission Date: 20110831
  Serious: Yes (Hospitalization, Other)
  Sender: FDA-Public Use
  Company Number: FR-PFIZER INC-2011016152

PATIENT
  Age: 23 Year
  Sex: Female

DRUGS (2)
  1. EFFERALGAN CODEINE [Concomitant]
     Dosage: UNK
     Route: 048
     Dates: start: 20101118, end: 20101118
  2. SALAZOPYRINE [Suspect]
     Indication: ARTHRITIS REACTIVE
     Dosage: UNK
     Route: 048
     Dates: start: 20101023, end: 20101121

REACTIONS (6)
  - LYMPHADENOPATHY [None]
  - EOSINOPHILIA [None]
  - PYREXIA [None]
  - RASH MACULO-PAPULAR [None]
  - TRANSAMINASES INCREASED [None]
  - BLOOD CREATININE INCREASED [None]
